FAERS Safety Report 16986094 (Version 1)
Quarter: 2019Q4

REPORT INFORMATION
  Report Type: Spontaneous
  Country: US (occurrence: US)
  Receive Date: 20190917
  Receipt Date: 20190917
  Transmission Date: 20200122
  Serious: Yes (Other)
  Sender: FDA-Public Use
  Company Number: None

PATIENT
  Age: 69 Year
  Sex: Female
  Weight: 63.5 kg

DRUGS (12)
  1. IRON GLUCINATE [Concomitant]
  2. ASPIRIN. [Concomitant]
     Active Substance: ASPIRIN
  3. KLOR-CON M10 [Concomitant]
     Active Substance: POTASSIUM CHLORIDE
  4. MURIROCIN [Concomitant]
  5. VITAMIN D3 [Concomitant]
     Active Substance: CHOLECALCIFEROL
  6. MAGNESIUM SULFATE. [Suspect]
     Active Substance: MAGNESIUM SULFATE
     Indication: HEADACHE
     Dates: start: 20190901, end: 20190901
  7. METHYLPREDNISOLONE SOD SUCCINATE [Suspect]
     Active Substance: METHYLPREDNISOLONE SODIUM SUCCINATE
  8. METOPROLOL SUCCINATE. [Concomitant]
     Active Substance: METOPROLOL SUCCINATE
  9. HYDROCHLOROTHIAZINE [Concomitant]
  10. NACL [Suspect]
     Active Substance: SODIUM CHLORIDE
  11. VITAMINS NOS [Concomitant]
     Active Substance: VITAMINS
  12. MULTIVITAMIN [Concomitant]
     Active Substance: VITAMINS

REACTIONS (8)
  - Cystitis noninfective [None]
  - Urinary tract inflammation [None]
  - Pollakiuria [None]
  - Presyncope [None]
  - Urinary tract discomfort [None]
  - Dysstasia [None]
  - Balance disorder [None]
  - Micturition urgency [None]

NARRATIVE: CASE EVENT DATE: 20190909
